FAERS Safety Report 5219365-6 (Version None)
Quarter: 2006Q4

REPORT INFORMATION
  Report Type: 
  Country: None (occurrence: None)
  Receive Date: 20061121
  Receipt Date: 20060825
  Transmission Date: 20070319
  Serious: No
  Sender: FDA-Public Use
  Company Number: TPA2006A01443

PATIENT
  Age: 65 Year
  Sex: Male
  Weight: 81.1939 kg

DRUGS (6)
  1. ROZEREM [Suspect]
     Indication: INSOMNIA
     Dosage: 8 MG, QHS, PER ORAL
     Route: 048
     Dates: start: 20060821
  2. CARISOPRODOL (CARISOPRODOL) (350 MILLIGRAM) [Concomitant]
  3. FLOMAX (TAMSULOSIN HYDROCHLORIDE) (0.4 MILLIGRAM) [Concomitant]
  4. PROSCAR (FINASTERIDE) (5 MILLIGRAM) [Concomitant]
  5. BUSPIRONE (BUSPIRONE) (10 MILLIGRAM) [Concomitant]
  6. LUNESTA (ESZOPLICONE) (3 MILLIGRAM) [Concomitant]

REACTIONS (4)
  - AGITATION [None]
  - INSOMNIA [None]
  - MIDDLE INSOMNIA [None]
  - NIGHTMARE [None]
